FAERS Safety Report 11686036 (Version 1)
Quarter: 2015Q4

REPORT INFORMATION
  Report Type: Spontaneous
  Country: US (occurrence: US)
  Receive Date: 20151030
  Receipt Date: 20151030
  Transmission Date: 20160304
  Serious: Yes (Other)
  Sender: FDA-Public Use
  Company Number: US-IGSA-GTI003619

PATIENT
  Age: 16 Year
  Sex: Male

DRUGS (4)
  1. HYPERRAB S/D [Suspect]
     Active Substance: HUMAN RABIES VIRUS IMMUNE GLOBULIN
     Indication: ANIMAL BITE
     Route: 030
     Dates: start: 20130622, end: 20130622
  2. VERORAB [Suspect]
     Active Substance: RABIES VACCINE
     Indication: ANIMAL BITE
  3. RABAVERT [Suspect]
     Active Substance: RABIES VIRUS STRAIN FLURY LEP ANTIGEN (PROPIOLACTONE INACTIVATED)
     Indication: ANIMAL BITE
     Route: 030
  4. DOXYCYCLINE. [Suspect]
     Active Substance: DOXYCYCLINE
     Indication: ANIMAL BITE

REACTIONS (1)
  - Immune thrombocytopenic purpura [Recovered/Resolved]

NARRATIVE: CASE EVENT DATE: 2013
